FAERS Safety Report 5412378-0 (Version None)
Quarter: 2007Q3

REPORT INFORMATION
  Report Type: 
  Country: None (occurrence: None)
  Receive Date: 20070813
  Receipt Date: 20070802
  Transmission Date: 20080115
  Serious: Yes (Hospitalization)
  Sender: FDA-Public Use
  Company Number: GB-AMGEN-UK237299

PATIENT
  Sex: Male
  Weight: 82.3 kg

DRUGS (2)
  1. PANITUMUMAB [Suspect]
     Indication: COLORECTAL CANCER
     Route: 042
     Dates: start: 20070718
  2. IRINOTECAN HCL [Suspect]
     Route: 042
     Dates: start: 20070718

REACTIONS (1)
  - NEUTROPENIA [None]
